FAERS Safety Report 25989313 (Version 2)
Quarter: 2025Q4

REPORT INFORMATION
  Report Type: Report from Study
  Country: US (occurrence: US)
  Receive Date: 20251103
  Receipt Date: 20251201
  Transmission Date: 20260118
  Serious: Yes (Other)
  Sender: DR REDDYS
  Company Number: US-DRL-USA-USA/2025/10/016479

PATIENT
  Age: 13 Year
  Sex: Male
  Weight: 46.63 kg

DRUGS (1)
  1. ACCUTANE [Suspect]
     Active Substance: ISOTRETINOIN
     Indication: Acne
     Route: 065
     Dates: start: 20250728

REACTIONS (2)
  - Suicidal ideation [Recovered/Resolved]
  - Suicide attempt [Unknown]
